FAERS Safety Report 8916008 (Version 2)
Quarter: 2012Q4

REPORT INFORMATION
  Report Type: 
  Country: JP (occurrence: JP)
  Receive Date: 20121119
  Receipt Date: 20121227
  Transmission Date: 20130627
  Serious: Yes (Life-Threatening)
  Sender: FDA-Public Use
  Company Number: JP-COVIDIEN/TYCO HEALTHCARE/MALLINCKRODT-T201203936

PATIENT
  Age: 86 Year
  Sex: Female
  Weight: 46 kg

DRUGS (1)
  1. OPTIRAY [Suspect]
     Indication: COMPUTERISED TOMOGRAM
     Dosage: 100 ml, single
     Route: 042
     Dates: start: 20121016, end: 20121016

REACTIONS (2)
  - Shock [Recovered/Resolved]
  - Blood pressure decreased [Recovered/Resolved]
